FAERS Safety Report 5132436-8 (Version None)
Quarter: 2006Q4

REPORT INFORMATION
  Report Type: 
  Country: None (occurrence: None)
  Receive Date: 20061017
  Receipt Date: 20061006
  Transmission Date: 20070319
  Serious: Yes (Other)
  Sender: FDA-Public Use
  Company Number: 230887

PATIENT
  Age: 40 Year
  Sex: Female
  Weight: 81.6 kg

DRUGS (2)
  1. XOLAIR [Suspect]
     Indication: ASTHMA
     Dosage: 375 MG, SUBCUTANEOUS
     Route: 058
     Dates: start: 20060520
  2. PREDNISONE TAB [Concomitant]

REACTIONS (2)
  - CONTUSION [None]
  - WEIGHT INCREASED [None]
